FAERS Safety Report 4626996-0 (Version None)
Quarter: 2005Q1

REPORT INFORMATION
  Report Type: 
  Country: None (occurrence: None)
  Receive Date: 20050331
  Receipt Date: 20050322
  Transmission Date: 20050727
  Serious: Yes (Hospitalization, Other)
  Sender: FDA-Public Use
  Company Number: 2005048838

PATIENT
  Age: 69 Year
  Sex: Male
  Weight: 104.3273 kg

DRUGS (8)
  1. INSPRA [Suspect]
     Indication: CARDIAC DISORDER
     Dosage: 25 MG (25 MG, QD; INTERVAL: EVERY DAY), ORAL
     Route: 048
     Dates: start: 20050201, end: 20050202
  2. BUFFERIN [Concomitant]
  3. CLOPIDOGREL BISULFATE [Concomitant]
  4. LEVOTHYROXINE SODIUM [Concomitant]
  5. LABETALOL HCL [Concomitant]
  6. PRAVASTATIN SODIUM [Concomitant]
  7. MECLOZINE (MECLOZINE) [Concomitant]
  8. PIOGLITAZONE HCL [Concomitant]

REACTIONS (8)
  - ASTHENIA [None]
  - BLOOD POTASSIUM INCREASED [None]
  - CARDIAC FAILURE CONGESTIVE [None]
  - DEPRESSION [None]
  - FULL BLOOD COUNT DECREASED [None]
  - GOUT [None]
  - RENAL DISORDER [None]
  - WEIGHT DECREASED [None]
